FAERS Safety Report 16136398 (Version 1)
Quarter: 2019Q1

REPORT INFORMATION
  Report Type: Spontaneous
  Country: US (occurrence: US)
  Receive Date: 20190329
  Receipt Date: 20190329
  Transmission Date: 20190418
  Serious: Yes (Other)
  Sender: FDA-Public Use
  Company Number: US-SHIRE-US201910312

PATIENT
  Age: 5 Year
  Sex: Female

DRUGS (1)
  1. VYVANSE [Suspect]
     Active Substance: LISDEXAMFETAMINE DIMESYLATE
     Indication: PRODUCT USED FOR UNKNOWN INDICATION
     Dosage: 60 MILLIGRAM
     Route: 065

REACTIONS (6)
  - Disturbance in attention [Unknown]
  - Attention deficit/hyperactivity disorder [Unknown]
  - Product prescribing error [Unknown]
  - Product physical issue [Unknown]
  - Product use issue [Unknown]
  - Mental impairment [Unknown]
